FAERS Safety Report 21446172 (Version 2)
Quarter: 2022Q4

REPORT INFORMATION
  Report Type: Report from Study
  Country: CH (occurrence: CH)
  Receive Date: 20221012
  Receipt Date: 20221128
  Transmission Date: 20230113
  Serious: No
  Sender: FDA-Public Use
  Company Number: CH-BAYER-2022A138672

PATIENT
  Age: 22 Year
  Sex: Female

DRUGS (1)
  1. KYLEENA [Suspect]
     Active Substance: LEVONORGESTREL
     Indication: Contraception
     Dosage: 17.5?G/DAY
     Route: 015
     Dates: start: 20180712, end: 20220926

REACTIONS (8)
  - Device expulsion [Recovered/Resolved]
  - Intermenstrual bleeding [None]
  - Heavy menstrual bleeding [None]
  - Dysmenorrhoea [None]
  - Procedural pain [None]
  - Post procedural hypotension [None]
  - Device difficult to use [None]
  - Complication of device removal [None]

NARRATIVE: CASE EVENT DATE: 20220301
